FAERS Safety Report 20004439 (Version 1)
Quarter: 2021Q4

REPORT INFORMATION
  Report Type: Spontaneous
  Country: IL (occurrence: IL)
  Receive Date: 20211028
  Receipt Date: 20211028
  Transmission Date: 20220303
  Serious: No
  Sender: FDA-Public Use
  Company Number: IL-GLAXOSMITHKLINE-IL2020EME231337

PATIENT
  Age: 29 Year
  Sex: Female

DRUGS (23)
  1. AMBRISENTAN [Suspect]
     Active Substance: AMBRISENTAN
     Indication: Pulmonary arterial hypertension
     Dosage: 10 MG
     Route: 048
     Dates: start: 201912, end: 202010
  2. AMBRISENTAN [Suspect]
     Active Substance: AMBRISENTAN
     Indication: Systemic lupus erythematosus
  3. BENLYSTA [Suspect]
     Active Substance: BELIMUMAB
     Indication: Systemic lupus erythematosus
     Dosage: 520 MG, Z MONTHLY
     Route: 042
     Dates: start: 2018
  4. BENLYSTA [Suspect]
     Active Substance: BELIMUMAB
     Dosage: UNK
     Route: 042
     Dates: start: 20200705, end: 20200705
  5. BENLYSTA [Suspect]
     Active Substance: BELIMUMAB
     Dosage: UNK
     Route: 042
     Dates: start: 20200705, end: 20200705
  6. BENLYSTA [Suspect]
     Active Substance: BELIMUMAB
     Dosage: UNK
     Route: 042
     Dates: start: 20200803, end: 20200803
  7. BENLYSTA [Suspect]
     Active Substance: BELIMUMAB
     Dosage: UNK
     Route: 042
     Dates: start: 20200803, end: 20200803
  8. BENLYSTA [Suspect]
     Active Substance: BELIMUMAB
     Dosage: UNK (7 WEEKS GESTATION WEEK OF EXPOSURE)
     Route: 042
     Dates: start: 20200923, end: 20200923
  9. BENLYSTA [Suspect]
     Active Substance: BELIMUMAB
     Dosage: UNK (7 WEEKS GESTATION WEEK OF EXPOSURE)
     Route: 042
     Dates: start: 20200923, end: 20200923
  10. BENLYSTA [Suspect]
     Active Substance: BELIMUMAB
     Dosage: UNK (11 WEEKS GESTATION WEEK OF EXPOSURE)
     Route: 042
     Dates: start: 20201020, end: 20201020
  11. BENLYSTA [Suspect]
     Active Substance: BELIMUMAB
     Dosage: UNK (11 WEEKS GESTATION WEEK OF EXPOSURE)
     Route: 042
     Dates: start: 20201020, end: 20201020
  12. BENLYSTA [Suspect]
     Active Substance: BELIMUMAB
     Dosage: UNK (15 WEEKS GESTATION WEEK OF EXPOSURE)
     Route: 042
     Dates: start: 20201117, end: 20201117
  13. BENLYSTA [Suspect]
     Active Substance: BELIMUMAB
     Dosage: UNK (15 WEEKS GESTATION WEEK OF EXPOSURE)
     Route: 042
     Dates: start: 20201117, end: 20201117
  14. BENLYSTA [Suspect]
     Active Substance: BELIMUMAB
     Dosage: UNK
     Route: 065
  15. OMEPRAZOLE [Suspect]
     Active Substance: OMEPRAZOLE
     Indication: Dyspepsia
     Dosage: UNK, 20
     Route: 048
     Dates: start: 2016
  16. VITAMIN D NOS [Suspect]
     Active Substance: VITAMIN D NOS
     Indication: Osteoporosis prophylaxis
     Dosage: 1400 IU
     Route: 048
     Dates: start: 2006
  17. HYDROXYCHLOROQUINE [Suspect]
     Active Substance: HYDROXYCHLOROQUINE
     Indication: Systemic lupus erythematosus
     Dosage: UNK, 400
     Route: 048
     Dates: start: 2006
  18. ASPIRIN [Suspect]
     Active Substance: ASPIRIN
     Indication: Systemic lupus erythematosus
     Dosage: UNK, 100
     Route: 048
     Dates: start: 2008
  19. ASPIRIN [Suspect]
     Active Substance: ASPIRIN
     Indication: Antiphospholipid antibodies
  20. VENTAVIS [Suspect]
     Active Substance: ILOPROST
     Indication: Pulmonary arterial hypertension
     Dosage: UNK, 300 MCG
     Route: 055
     Dates: start: 202010
  21. VENTAVIS [Suspect]
     Active Substance: ILOPROST
     Indication: Systemic lupus erythematosus
  22. SILDENAFIL [Suspect]
     Active Substance: SILDENAFIL
     Indication: Systemic lupus erythematosus
     Dosage: 60 MG
     Route: 048
     Dates: start: 201709
  23. SILDENAFIL [Suspect]
     Active Substance: SILDENAFIL
     Indication: Pulmonary arterial hypertension

REACTIONS (2)
  - Exposure during pregnancy [Unknown]
  - Live birth [Unknown]
